FAERS Safety Report 16745768 (Version 8)
Quarter: 2020Q4

REPORT INFORMATION
  Report Type: Report from Study
  Country: JP (occurrence: JP)
  Receive Date: 20190827
  Receipt Date: 20201029
  Transmission Date: 20210113
  Serious: Yes (Hospitalization, Other)
  Sender: FDA-Public Use
  Company Number: JP-BRISTOL-MYERS SQUIBB COMPANY-BMS-2019-073510

PATIENT
  Age: 75 Year
  Sex: Male
  Weight: 64 kg

DRUGS (8)
  1. NIVOLUMAB [Suspect]
     Active Substance: NIVOLUMAB
     Indication: MALIGNANT MELANOMA
     Dosage: 80 MILLIGRAM
     Route: 041
     Dates: start: 20190618, end: 20190709
  2. PREDONINE [PREDNISOLONE ACETATE] [Suspect]
     Active Substance: PREDNISOLONE ACETATE
     Indication: INTERSTITIAL LUNG DISEASE
  3. PREDONINE [PREDNISOLONE ACETATE] [Suspect]
     Active Substance: PREDNISOLONE ACETATE
     Indication: RASH MACULO-PAPULAR
     Dosage: 35 MILLIGRAM, QD
     Route: 048
     Dates: start: 20190816
  4. IPILIMUMAB [Suspect]
     Active Substance: IPILIMUMAB
     Indication: MALIGNANT MELANOMA
     Dosage: 3 MILLIGRAM/KILOGRAM
     Route: 041
     Dates: start: 20190618, end: 20190709
  5. PREDONINE [PREDNISOLONE ACETATE] [Suspect]
     Active Substance: PREDNISOLONE ACETATE
     Indication: LIVER DISORDER
     Dosage: 20 MILLIGRAM, DAILY
     Route: 048
     Dates: start: 20190709, end: 20190815
  6. CORTICOSTEROID NOS [Suspect]
     Active Substance: CORTICOSTEROID NOS
     Indication: METASTASES TO CENTRAL NERVOUS SYSTEM
     Dosage: UNK
     Route: 065
  7. PREDONINE [PREDNISOLONE ACETATE] [Suspect]
     Active Substance: PREDNISOLONE ACETATE
     Indication: PYREXIA
  8. PREDONINE [PREDNISOLONE ACETATE] [Suspect]
     Active Substance: PREDNISOLONE ACETATE
     Indication: RENAL DISORDER

REACTIONS (7)
  - Interstitial lung disease [Recovered/Resolved]
  - Renal disorder [Recovered/Resolved]
  - Rash maculo-papular [Recovering/Resolving]
  - Pancreatic enzymes increased [Recovered/Resolved]
  - Liver disorder [Recovering/Resolving]
  - Pyrexia [Recovering/Resolving]
  - Pneumocystis jirovecii pneumonia [Recovering/Resolving]

NARRATIVE: CASE EVENT DATE: 20190702
